FAERS Safety Report 13882686 (Version 11)
Quarter: 2018Q1

REPORT INFORMATION
  Report Type: Spontaneous
  Country: US (occurrence: US)
  Receive Date: 20170818
  Receipt Date: 20180220
  Transmission Date: 20180508
  Serious: Yes (Hospitalization, Other)
  Sender: FDA-Public Use
  Company Number: US-PFIZER INC-2017348962

PATIENT
  Age: 67 Year
  Sex: Female
  Weight: 100 kg

DRUGS (4)
  1. SKELAXIN [Suspect]
     Active Substance: METAXALONE
     Indication: MUSCLE DISORDER
     Dosage: 800 MG, 3X/DAY
     Route: 048
     Dates: start: 20170801, end: 20170810
  2. SKELAXIN [Suspect]
     Active Substance: METAXALONE
     Indication: MUSCLE SPASMS
  3. SKELAXIN [Suspect]
     Active Substance: METAXALONE
     Indication: MYALGIA
  4. SKELAXIN [Suspect]
     Active Substance: METAXALONE
     Indication: ANTIINFLAMMATORY THERAPY
     Dosage: 800 MG, 3X/DAY
     Route: 048
     Dates: start: 20170802, end: 20170807

REACTIONS (31)
  - Syncope [Not Recovered/Not Resolved]
  - Insomnia [Recovering/Resolving]
  - Abdominal discomfort [Recovering/Resolving]
  - Asthenia [Not Recovered/Not Resolved]
  - Feeling cold [Unknown]
  - Head injury [Not Recovered/Not Resolved]
  - Condition aggravated [Recovering/Resolving]
  - Peripheral swelling [Not Recovered/Not Resolved]
  - Influenza [Recovering/Resolving]
  - Loss of consciousness [Recovered/Resolved with Sequelae]
  - Gait disturbance [Not Recovered/Not Resolved]
  - Malaise [Recovering/Resolving]
  - Irritable bowel syndrome [Not Recovered/Not Resolved]
  - Constipation [Not Recovered/Not Resolved]
  - Abdominal distension [Not Recovered/Not Resolved]
  - Fall [Unknown]
  - Condition aggravated [Not Recovered/Not Resolved]
  - Drug ineffective [Not Recovered/Not Resolved]
  - Dizziness [Recovering/Resolving]
  - Abdominal pain upper [Not Recovered/Not Resolved]
  - Migraine [Unknown]
  - Rash [Not Recovered/Not Resolved]
  - Pyrexia [Unknown]
  - Nausea [Unknown]
  - Headache [Not Recovered/Not Resolved]
  - Tremor [Recovering/Resolving]
  - Fatigue [Recovering/Resolving]
  - Hallucination [Recovered/Resolved]
  - Hot flush [Unknown]
  - Chills [Recovering/Resolving]
  - Memory impairment [Recovered/Resolved]

NARRATIVE: CASE EVENT DATE: 20170804
